FAERS Safety Report 7347733-5 (Version None)
Quarter: 2011Q1

REPORT INFORMATION
  Report Type: 
  Country: None (occurrence: None)
  Receive Date: 20110311
  Receipt Date: 20110304
  Transmission Date: 20110831
  Serious: Yes (Life-Threatening, Hospitalization, Other)
  Sender: FDA-Public Use
  Company Number: A0916758A

PATIENT
  Age: 9 Year
  Sex: Male

DRUGS (8)
  1. ACETAMINOPHEN [Concomitant]
  2. OMEPRAZOLE [Concomitant]
  3. METRONIDAZOLE [Concomitant]
  4. ACYCLOVIR [Concomitant]
  5. ARZERRA [Suspect]
     Dosage: 100MG SINGLE DOSE
     Route: 042
     Dates: start: 20110304, end: 20110304
  6. DIPHENHYDRAMINE [Concomitant]
  7. VITAMIN K TAB [Concomitant]
  8. HYDROCORTISONE [Concomitant]

REACTIONS (2)
  - BRADYCARDIA [None]
  - ELECTROCARDIOGRAM QT PROLONGED [None]
